FAERS Safety Report 20732347 (Version 1)
Quarter: 2022Q2

REPORT INFORMATION
  Report Type: Spontaneous
  Country: US (occurrence: US)
  Receive Date: 20220420
  Receipt Date: 20220420
  Transmission Date: 20220721
  Serious: Yes (Death, Other)
  Sender: FDA-Public Use
  Company Number: US-AMGEN-USASP2022065091

PATIENT

DRUGS (1)
  1. EPOETIN ALFA [Suspect]
     Active Substance: ERYTHROPOIETIN
     Indication: Nephrogenic anaemia
     Dosage: UNK
     Route: 065

REACTIONS (115)
  - Death [Fatal]
  - Pneumonia [Unknown]
  - Atrial fibrillation [Unknown]
  - Sepsis [Unknown]
  - Peritonitis [Unknown]
  - Cellulitis [Unknown]
  - Septic shock [Unknown]
  - Device related infection [Unknown]
  - Gangrene [Unknown]
  - Hyperkalaemia [Unknown]
  - Ischaemic stroke [Unknown]
  - Syncope [Unknown]
  - Acute myocardial infarction [Unknown]
  - Cardiac failure congestive [Unknown]
  - Cardiac failure [Unknown]
  - Atrial fibrillation [Unknown]
  - Cardiac failure acute [Unknown]
  - Hypertensive crisis [Unknown]
  - Hypertensive emergency [Unknown]
  - Vascular access site thrombosis [Unknown]
  - Acute respiratory failure [Unknown]
  - Pulmonary oedema [Unknown]
  - Gastrointestinal haemorrhage [Unknown]
  - Azotaemia [Unknown]
  - End stage renal disease [Unknown]
  - HIV infection [Unknown]
  - Cerebral haemorrhage [Unknown]
  - Lung carcinoma cell type unspecified stage IV [Unknown]
  - Bone marrow reticulin fibrosis [Unknown]
  - Adult failure to thrive [Unknown]
  - Oesophageal carcinoma [Unknown]
  - Adenocarcinoma of colon [Unknown]
  - Cardiopulmonary failure [Unknown]
  - Haemorrhagic stroke [Unknown]
  - Decreased appetite [Unknown]
  - Dementia [Unknown]
  - Spinal cord compression [Unknown]
  - Body temperature increased [Unknown]
  - General physical health deterioration [Unknown]
  - Swelling face [Unknown]
  - Subarachnoid haemorrhage [Unknown]
  - Acute myocardial infarction [Unknown]
  - Cardiac failure congestive [Unknown]
  - Coronary artery disease [Unknown]
  - Cardiac failure [Unknown]
  - Atrial fibrillation [Unknown]
  - Cardiac failure acute [Unknown]
  - Angina pectoris [Unknown]
  - Cardio-respiratory arrest [Unknown]
  - Bradycardia [Unknown]
  - Acute coronary syndrome [Unknown]
  - Angina unstable [Unknown]
  - Myocardial ischaemia [Unknown]
  - Cardiac arrest [Unknown]
  - Ventricular fibrillation [Unknown]
  - Arrhythmia [Unknown]
  - Cardiopulmonary failure [Unknown]
  - Acute left ventricular failure [Unknown]
  - Cardiogenic shock [Unknown]
  - Cardiac failure chronic [Unknown]
  - Pulseless electrical activity [Unknown]
  - Left ventricular dysfunction [Unknown]
  - Left ventricular failure [Unknown]
  - Pericarditis [Unknown]
  - Trifascicular block [Unknown]
  - Sinus node dysfunction [Unknown]
  - Ventricular tachycardia [Unknown]
  - Right ventricular failure [Unknown]
  - Cardiovascular insufficiency [Unknown]
  - Coronary artery stenosis [Unknown]
  - Pericardial effusion [Unknown]
  - Aortic valve incompetence [Unknown]
  - Atrioventricular block complete [Unknown]
  - Cardiac asthma [Unknown]
  - Cardiac perforation [Unknown]
  - Congestive cardiomyopathy [Unknown]
  - Intracardiac thrombus [Unknown]
  - Ischaemic cardiomyopathy [Unknown]
  - Mitral valve incompetence [Unknown]
  - Myocardial infarction [Unknown]
  - Aplasia pure red cell [Unknown]
  - Myocardial infarction [Unknown]
  - Cerebrovascular accident [Unknown]
  - Arteriovenous fistula thrombosis [Unknown]
  - Myocardial infarction [Unknown]
  - Arteriovenous fistula thrombosis [Unknown]
  - Seizure [Unknown]
  - Cerebrovascular accident [Unknown]
  - Supraventricular extrasystoles [Unknown]
  - Supraventricular tachycardia [Unknown]
  - Ventricular extrasystoles [Unknown]
  - Arteriovenous fistula site complication [Unknown]
  - Haemoglobin decreased [Unknown]
  - Diarrhoea [Unknown]
  - Dyspnoea [Unknown]
  - Bronchitis [Unknown]
  - Hypervolaemia [Unknown]
  - Abdominal pain [Unknown]
  - Hypotension [Unknown]
  - Gastroenteritis [Unknown]
  - Hypoglycaemia [Unknown]
  - Coronary artery disease [Unknown]
  - Gastritis [Unknown]
  - Urinary tract infection [Unknown]
  - Pleural effusion [Unknown]
  - Non-cardiac chest pain [Unknown]
  - Hypotension [Unknown]
  - Upper respiratory tract infection [Unknown]
  - Pyrexia [Unknown]
  - Headache [Unknown]
  - Hypertension [Unknown]
  - Nausea [Unknown]
  - Cough [Unknown]
  - Vomiting [Unknown]
  - Hypertension [Unknown]
